FAERS Safety Report 9888403 (Version 1)
Quarter: 2014Q1

REPORT INFORMATION
  Report Type: Spontaneous
  Country: US (occurrence: US)
  Receive Date: 20140211
  Receipt Date: 20140211
  Transmission Date: 20141002
  Serious: No
  Sender: FDA-Public Use
  Company Number: US-PFIZER INC-2014037401

PATIENT
  Age: 57 Year
  Sex: Male
  Weight: 53.52 kg

DRUGS (1)
  1. CHANTIX [Suspect]
     Indication: SMOKING CESSATION THERAPY
     Dosage: UNK
     Dates: start: 201402

REACTIONS (7)
  - Abnormal dreams [Unknown]
  - Diarrhoea [Unknown]
  - Emotional disorder [Unknown]
  - Nervousness [Unknown]
  - Pre-existing condition improved [Unknown]
  - Therapeutic response unexpected [Unknown]
  - Feeling abnormal [Unknown]
